FAERS Safety Report 7225630-3 (Version None)
Quarter: 2011Q1

REPORT INFORMATION
  Report Type: 
  Country: None (occurrence: None)
  Receive Date: 20110107
  Receipt Date: 20110107
  Transmission Date: 20110831
  Serious: Yes (Other)
  Sender: FDA-Public Use
  Company Number: None

PATIENT
  Sex: Female
  Weight: 86.1834 kg

DRUGS (1)
  1. LORSARTAN/HCT [Suspect]

REACTIONS (4)
  - JOINT SWELLING [None]
  - BLOOD PRESSURE INADEQUATELY CONTROLLED [None]
  - PRODUCT QUALITY ISSUE [None]
  - ARTHRALGIA [None]
